FAERS Safety Report 5198093-X (Version None)
Quarter: 2006Q4

REPORT INFORMATION
  Report Type: 
  Country: None (occurrence: None)
  Receive Date: 20061229
  Receipt Date: 20061211
  Transmission Date: 20070319
  Serious: Yes (Other)
  Sender: FDA-Public Use
  Company Number: 2411512-2006-00004

PATIENT
  Age: 64 Year
  Sex: Male

DRUGS (2)
  1. E-Z-HD BARIUM SULFATE FOR SUSPENSION (98% W/W) [Suspect]
     Indication: X-RAY
     Dosage: 340G, 2X ORALLY
     Dates: start: 20061209
  2. E-Z-HD BARIUM SULFATE FOR SUSPENSION (98% W/W) [Suspect]
     Indication: X-RAY
     Dosage: 340G, 2X ORALLY
     Dates: start: 20061210

REACTIONS (2)
  - OBSTRUCTION [None]
  - WRONG DRUG ADMINISTERED [None]
